FAERS Safety Report 15683525 (Version 2)
Quarter: 2019Q3

REPORT INFORMATION
  Report Type: Spontaneous
  Country: ES (occurrence: ES)
  Receive Date: 20181204
  Receipt Date: 20190729
  Transmission Date: 20191004
  Serious: Yes (Life-Threatening, Hospitalization, Other)
  Sender: FDA-Public Use
  Company Number: ES-AUROBINDO-AUR-APL-2018-056889

PATIENT

DRUGS (7)
  1. OLANZAPINE. [Suspect]
     Active Substance: OLANZAPINE
     Indication: SCHIZOPHRENIA
     Dosage: 10 MILLIGRAM, DAILY
     Route: 065
  2. OLANZAPINE. [Suspect]
     Active Substance: OLANZAPINE
     Dosage: PROGRESSIVE REDUCTION OF OLANZAPINE FIFTEEN DAYS BEFORE THE CLINIC
     Route: 065
  3. OLANZAPINE. [Suspect]
     Active Substance: OLANZAPINE
     Dosage: 15 MILLIGRAM, DAILY
     Route: 065
  4. OLANZAPINE. [Suspect]
     Active Substance: OLANZAPINE
     Indication: INTELLECTUAL DISABILITY
     Dosage: 5 MILLIGRAM, DAILY
     Route: 065
  5. PALIPERIDONE. [Concomitant]
     Active Substance: PALIPERIDONE
     Indication: SCHIZOPHRENIA
     Dosage: 3 MILLIGRAM, DAILY
     Route: 065
  6. PALIPERIDONE. [Concomitant]
     Active Substance: PALIPERIDONE
     Dosage: 3 MILLIGRAM, DAILY, DOSE BETWEEN 3-9 MG/DAY
     Route: 065
  7. PALIPERIDONE. [Concomitant]
     Active Substance: PALIPERIDONE
     Indication: INTELLECTUAL DISABILITY
     Dosage: 9 MILLIGRAM, DAILY, DOSE BETWEEN 3-9 MG/DAY
     Route: 065

REACTIONS (26)
  - Bacteriuria [Recovered/Resolved]
  - Rhabdomyolysis [Recovered/Resolved]
  - Haematuria [Recovered/Resolved]
  - Gait disturbance [Recovering/Resolving]
  - Encephalopathy [Recovered/Resolved]
  - Cardiomegaly [Recovered/Resolved]
  - Tachypnoea [Unknown]
  - Language disorder [Recovering/Resolving]
  - Neuroleptic malignant syndrome [Recovered/Resolved]
  - Mucosal dryness [Unknown]
  - Hypotension [Unknown]
  - Tachycardia [Unknown]
  - Clonus [Recovering/Resolving]
  - General physical health deterioration [Recovered/Resolved]
  - Alpha haemolytic streptococcal infection [Unknown]
  - Psychomotor skills impaired [Recovering/Resolving]
  - Hypernatraemia [Recovered/Resolved]
  - Metabolic acidosis [Recovered/Resolved]
  - Hypoventilation [Unknown]
  - Eye movement disorder [Recovering/Resolving]
  - Renal impairment [Unknown]
  - Seizure [Recovered/Resolved]
  - Bradyphrenia [Unknown]
  - Drug withdrawal syndrome [Recovered/Resolved]
  - Acute kidney injury [Recovered/Resolved]
  - Pyuria [Recovered/Resolved]
